FAERS Safety Report 23418258 (Version 1)
Quarter: 2024Q1

REPORT INFORMATION
  Report Type: Spontaneous
  Country: US (occurrence: None)
  Receive Date: 20240118
  Receipt Date: 20240118
  Transmission Date: 20240410
  Serious: Yes (Hospitalization, Disabling)
  Sender: FDA-Public Use
  Company Number: None

PATIENT
  Age: 77 Year
  Sex: Female
  Weight: 70.31 kg

DRUGS (20)
  1. EVENITY [Suspect]
     Active Substance: ROMOSOZUMAB-AQQG
     Indication: Osteoporosis
     Dosage: FREQUENCY : MONTHLY;?
     Dates: start: 20231002
  2. SYNTHROID [Concomitant]
     Active Substance: LEVOTHYROXINE SODIUM
  3. ATORVASTATIN [Concomitant]
     Active Substance: ATORVASTATIN
  4. METOPROLOL [Concomitant]
     Active Substance: METOPROLOL
  5. MELOXICAM [Concomitant]
     Active Substance: MELOXICAM
  6. ALPHAGAN (BRIMONIDINE) [Concomitant]
  7. COSOPT (DORZOLAMIDE-TIMOLOL) [Concomitant]
  8. LATAPROST (XALATAN) [Concomitant]
  9. BABY (ASPIRIN) [Concomitant]
  10. TYLENOL [Concomitant]
     Active Substance: ACETAMINOPHEN
  11. EYE VITAMINS (F-CAPS) [Concomitant]
  12. ZYRTEC [Concomitant]
     Active Substance: CETIRIZINE HYDROCHLORIDE
  13. PEPCID [Concomitant]
     Active Substance: FAMOTIDINE
  14. GLUCOSAMINE [Concomitant]
  15. MELATONIN [Concomitant]
     Active Substance: MELATONIN
  16. MIRALAX [Concomitant]
     Active Substance: POLYETHYLENE GLYCOL 3350
  17. CHOLCALCIFEROL [Concomitant]
  18. CYANOCOBALAMIN [Concomitant]
     Active Substance: CYANOCOBALAMIN
  19. VITAMIN B12 [Concomitant]
     Active Substance: CYANOCOBALAMIN
  20. ESTRADIOL [Concomitant]
     Active Substance: ESTRADIOL

REACTIONS (8)
  - Gait inability [None]
  - Pain in extremity [None]
  - Cauda equina syndrome [None]
  - Hip fracture [None]
  - Pain in extremity [None]
  - Asthenia [None]
  - Therapy cessation [None]
  - Walking aid user [None]

NARRATIVE: CASE EVENT DATE: 20231026
